FAERS Safety Report 8427634-1 (Version None)
Quarter: 2012Q2

REPORT INFORMATION
  Report Type: 
  Country: None (occurrence: None)
  Receive Date: 20120611
  Receipt Date: 20120530
  Transmission Date: 20120825
  Serious: Yes (Other)
  Sender: FDA-Public Use
  Company Number: DE-JNJFOC-20120400334

PATIENT
  Sex: Male
  Weight: 80 kg

DRUGS (9)
  1. TRAMADOL HCL [Suspect]
     Indication: PRODUCT USED FOR UNKNOWN INDICATION
     Dosage: 1 TO 2 X 100 ML PER MONTH; FOR YEARS
     Route: 048
  2. TRAMADOL HYDROCHLORIDE [Suspect]
     Route: 065
  3. METHADONE HCL [Interacting]
     Indication: WITHDRAWAL SYNDROME
     Route: 065
  4. ACTRAPID [Concomitant]
     Indication: DIABETES MELLITUS
     Route: 065
  5. TRAMADOL HYDROCHLORIDE [Suspect]
     Indication: WITHDRAWAL SYNDROME
     Dosage: 1200 MG  +/- 300 MG/DAY
     Route: 065
  6. LEVOMETHADONE [Concomitant]
     Indication: PRODUCT USED FOR UNKNOWN INDICATION
     Route: 065
  7. TORSEMIDE [Concomitant]
     Indication: PRODUCT USED FOR UNKNOWN INDICATION
     Route: 065
  8. FENTANYL [Concomitant]
     Indication: PRODUCT USED FOR UNKNOWN INDICATION
     Route: 065
  9. FUROSEMIDE [Concomitant]
     Indication: PRODUCT USED FOR UNKNOWN INDICATION
     Route: 065

REACTIONS (13)
  - DRUG INTERACTION [None]
  - DECREASED INSULIN REQUIREMENT [None]
  - BLOOD GLUCOSE DECREASED [None]
  - NAUSEA [None]
  - THIRST DECREASED [None]
  - HYPOGLYCAEMIA [None]
  - POLYURIA [None]
  - SLEEP DISORDER [None]
  - INTENTIONAL OVERDOSE [None]
  - HALLUCINATION, AUDITORY [None]
  - EUPHORIC MOOD [None]
  - DECREASED APPETITE [None]
  - DISORIENTATION [None]
